FAERS Safety Report 15116921 (Version 2)
Quarter: 2020Q3

REPORT INFORMATION
  Report Type: Spontaneous
  Country: JP (occurrence: JP)
  Receive Date: 20180706
  Receipt Date: 20200731
  Transmission Date: 20201102
  Serious: Yes (Death, Life-Threatening, Other)
  Sender: FDA-Public Use
  Company Number: JP-JNJFOC-20180704648

PATIENT
  Age: 66 Year
  Sex: Female
  Weight: 51.4 kg

DRUGS (10)
  1. MAINTATE [Concomitant]
     Active Substance: BISOPROLOL FUMARATE
     Route: 048
  2. MAGLAX [MAGNESIUM OXIDE] [Concomitant]
     Dosage: WHEN CONSTIPATION
  3. DAIKENCHUTO [Concomitant]
     Active Substance: HERBALS
  4. TAKECAB [Concomitant]
     Active Substance: VONOPRAZAN FUMARATE
     Dosage: DAILY DOSE 20 MG
  5. RED BLOOD CELLS [Concomitant]
     Active Substance: HUMAN RED BLOOD CELL
  6. XARELTO [Suspect]
     Active Substance: RIVAROXABAN
     Indication: ENDOCARDITIS
  7. HEPARIN [Suspect]
     Active Substance: HEPARIN SODIUM
     Dosage: UNK
     Route: 058
  8. CALONAL [Concomitant]
     Active Substance: ACETAMINOPHEN
  9. XARELTO [Suspect]
     Active Substance: RIVAROXABAN
     Indication: EMBOLISM VENOUS
     Dosage: 15 MG, QD
     Route: 048
     Dates: start: 20180605, end: 20180706
  10. AZUNOL [GUAIAZULENE] [Concomitant]
     Active Substance: GUAIAZULENE
     Dosage: APPROPRIATE AMOUNT

REACTIONS (8)
  - Cerebral infarction [Fatal]
  - Therapeutic product effect incomplete [Unknown]
  - Endocarditis noninfective [Unknown]
  - Heparin-induced thrombocytopenia [Unknown]
  - Depressed level of consciousness [Fatal]
  - Disseminated intravascular coagulation [Unknown]
  - Cerebral infarction [Recovering/Resolving]
  - Hemiplegia [Fatal]

NARRATIVE: CASE EVENT DATE: 20180606
